FAERS Safety Report 11180199 (Version 1)
Quarter: 2015Q2

REPORT INFORMATION
  Report Type: Spontaneous
  Country: US (occurrence: US)
  Receive Date: 20150611
  Receipt Date: 20150611
  Transmission Date: 20150821
  Serious: Yes (Other)
  Sender: FDA-Public Use
  Company Number: US-CIPLA LTD.-2015US04431

PATIENT

DRUGS (6)
  1. ANASTROZOLE. [Suspect]
     Active Substance: ANASTROZOLE
     Indication: METASTASES TO BONE
  2. EVEROLIMUS [Suspect]
     Active Substance: EVEROLIMUS
     Indication: INTRADUCTAL PROLIFERATIVE BREAST LESION
     Dosage: 5 MG, QD
     Route: 048
     Dates: start: 201103
  3. EVEROLIMUS [Suspect]
     Active Substance: EVEROLIMUS
     Indication: METASTASES TO BONE
  4. EVEROLIMUS [Suspect]
     Active Substance: EVEROLIMUS
     Indication: METASTASES TO PLEURA
  5. ANASTROZOLE. [Suspect]
     Active Substance: ANASTROZOLE
     Indication: METASTASES TO PLEURA
  6. ANASTROZOLE. [Suspect]
     Active Substance: ANASTROZOLE
     Indication: INTRADUCTAL PROLIFERATIVE BREAST LESION
     Dosage: 1 MG, QD
     Route: 048
     Dates: start: 201103

REACTIONS (1)
  - Disease progression [Unknown]
